FAERS Safety Report 8070933-6 (Version None)
Quarter: 2011Q4

REPORT INFORMATION
  Report Type: 
  Country: None (occurrence: None)
  Receive Date: 20111221
  Receipt Date: 20101122
  Transmission Date: 20120403
  Serious: Yes (Other)
  Sender: FDA-Public Use
  Company Number: PHHY2010US71241

PATIENT
  Age: 2 Year
  Sex: Male
  Weight: 90 kg

DRUGS (4)
  1. EXJADE [Suspect]
     Indication: ANAEMIA
     Dosage: 125  MG, DAILY, ORAL
     Route: 048
     Dates: start: 20101007, end: 20101019
  2. EXJADE [Suspect]
     Indication: IRON OVERLOAD
     Dosage: 125  MG, DAILY, ORAL
     Route: 048
     Dates: start: 20101007, end: 20101019
  3. EXJADE [Suspect]
     Indication: ANAEMIA
     Dosage: 125  MG, DAILY, ORAL
     Route: 048
     Dates: start: 20101101, end: 20101108
  4. EXJADE [Suspect]
     Indication: IRON OVERLOAD
     Dosage: 125  MG, DAILY, ORAL
     Route: 048
     Dates: start: 20101101, end: 20101108

REACTIONS (3)
  - THROMBOCYTOPENIA [None]
  - CONCOMITANT DISEASE PROGRESSION [None]
  - NEUTROPENIA [None]
